FAERS Safety Report 5208642-0 (Version None)
Quarter: 2007Q1

REPORT INFORMATION
  Report Type: 
  Country: None (occurrence: None)
  Receive Date: 20070116
  Receipt Date: 20070102
  Transmission Date: 20070707
  Serious: Yes (Hospitalization, Other)
  Sender: FDA-Public Use
  Company Number: PHFR2007GB00442

PATIENT
  Age: 33 Year
  Sex: Male

DRUGS (3)
  1. CYCLOSPORINE [Suspect]
     Indication: PSORIASIS
     Dosage: 3MG/KG DAY
     Route: 065
     Dates: start: 20040115, end: 20040815
  2. ACITRETIN [Suspect]
     Indication: PSORIASIS
     Dosage: 20MG/DAY
     Route: 048
     Dates: start: 20021115, end: 20041215
  3. BENDROFLUMETHIAZIDE [Concomitant]
     Indication: HYPERTENSION
     Route: 065

REACTIONS (6)
  - BACK PAIN [None]
  - BLOOD PRESSURE INCREASED [None]
  - EXTRASKELETAL OSSIFICATION [None]
  - MUSCULAR WEAKNESS [None]
  - MYOSITIS OSSIFICANS [None]
  - SYNDESMOPHYTE [None]
